FAERS Safety Report 13821948 (Version 1)
Quarter: 2017Q3

REPORT INFORMATION
  Report Type: Spontaneous
  Country: GB (occurrence: GB)
  Receive Date: 20170801
  Receipt Date: 20170801
  Transmission Date: 20171127
  Serious: Yes (Other)
  Sender: FDA-Public Use
  Company Number: GB-TEVA-789999ACC

PATIENT
  Age: 51 Year
  Sex: Female

DRUGS (13)
  1. HYDROCORTISONE. [Concomitant]
     Active Substance: HYDROCORTISONE
     Dosage: APPLY AS DIRECTED
     Dates: start: 20161230
  2. CODEINE PHOSPHATE [Concomitant]
     Active Substance: CODEINE PHOSPHATE
     Dosage: 4 DOSAGE FORMS DAILY;
     Dates: start: 20170629, end: 20170706
  3. NAPROXEN. [Concomitant]
     Active Substance: NAPROXEN
     Dosage: 2 DOSAGE FORMS DAILY;
     Dates: start: 20170621
  4. PROTOPIC [Concomitant]
     Active Substance: TACROLIMUS
     Dosage: AS DIRECTED BY HOSPITAL
     Dates: start: 20161230
  5. GABAPENTIN. [Suspect]
     Active Substance: GABAPENTIN
     Dates: start: 20170711
  6. DALACIN [Concomitant]
     Active Substance: CLINDAMYCIN
     Dosage: 2 DOSAGE FORMS DAILY;
     Dates: start: 20161230
  7. DERMOL [Concomitant]
     Active Substance: BENZALKONIUM CHLORIDE\CHLORHEXIDINE HYDROCHLORIDE\ISOPROPYL MYRISTATE\PARAFFIN
     Dates: start: 20170224
  8. DICLOFENAC SODIUM. [Concomitant]
     Active Substance: DICLOFENAC SODIUM
     Dosage: 1 DOSAGE FORMS DAILY;
     Dates: start: 20170710
  9. DIPROBASE [Concomitant]
     Active Substance: CHLOROCRESOL
     Dosage: AS DIRECTED
     Dates: start: 20161230
  10. CLOBAZAM [Concomitant]
     Active Substance: CLOBAZAM
     Indication: EPILEPSY
     Dosage: 2 DOSAGE FORMS DAILY;
     Dates: start: 20170224
  11. MACROGOL [Concomitant]
     Active Substance: POLYETHYLENE GLYCOLS
     Dosage: 1-3 DAILY (UP TO 8 TO START)
     Dates: start: 20170706, end: 20170707
  12. PRIMIDONE. [Concomitant]
     Active Substance: PRIMIDONE
     Dosage: 5 DOSAGE FORMS DAILY;
     Dates: start: 20170224
  13. TEGRETOL [Concomitant]
     Active Substance: CARBAMAZEPINE
     Dosage: 8 DOSAGE FORMS DAILY;
     Dates: start: 20170404

REACTIONS (2)
  - Confusional state [Recovered/Resolved]
  - Feeling of body temperature change [Recovered/Resolved]

NARRATIVE: CASE EVENT DATE: 20170711
